FAERS Safety Report 9290890 (Version 1)
Quarter: 2013Q2

REPORT INFORMATION
  Report Type: Spontaneous
  Country: CN (occurrence: CN)
  Receive Date: 20130515
  Receipt Date: 20130515
  Transmission Date: 20140414
  Serious: Yes (Hospitalization)
  Sender: FDA-Public Use
  Company Number: CN-PFIZER INC-2013147460

PATIENT
  Age: 50 Year
  Sex: Female
  Weight: 65 kg

DRUGS (4)
  1. NORVASC [Suspect]
     Dosage: 5 MG, 1X/DAY
     Route: 048
     Dates: start: 20120901, end: 20120906
  2. TOPROL [Concomitant]
  3. COLGEN SUMMER TABLET [Concomitant]
  4. METFORMIN [Concomitant]

REACTIONS (1)
  - Upper respiratory tract infection [Recovered/Resolved]
